FAERS Safety Report 8247671-X (Version None)
Quarter: 2012Q1

REPORT INFORMATION
  Report Type: 
  Country: None (occurrence: None)
  Receive Date: 20120330
  Receipt Date: 20120328
  Transmission Date: 20120608
  Serious: No
  Sender: FDA-Public Use
  Company Number: US-B.I. PHARMACEUTICALS,INC./RIDGEFIELD-2012-BP-05906BP

PATIENT
  Sex: Female

DRUGS (20)
  1. TRADJENTA [Suspect]
     Indication: TYPE 2 DIABETES MELLITUS
     Dosage: 5 MG
     Route: 048
     Dates: start: 20120224
  2. KLOR-CON [Concomitant]
     Indication: HYPOKALAEMIA
     Dosage: 25 MG
     Route: 048
  3. SPIRONOLACTONE [Concomitant]
     Indication: OEDEMA
     Dosage: 50 MG
     Route: 048
  4. FUROSEMIDE [Concomitant]
     Indication: OEDEMA
     Dosage: 40 MG
     Route: 048
  5. TRILIPIX [Concomitant]
     Dosage: 13.5 MG
     Route: 048
  6. ZETIA [Concomitant]
     Indication: BLOOD CHOLESTEROL
     Dosage: 10 MG
     Route: 048
  7. LOSARTAN POTASSIUM [Concomitant]
     Indication: BLOOD PRESSURE MANAGEMENT
     Dosage: 50 MG
     Route: 048
  8. ASTEPRO [Concomitant]
     Indication: SEASONAL ALLERGY
     Route: 045
  9. MULTI-VITAMINS [Concomitant]
     Indication: VITAMIN SUPPLEMENTATION
     Route: 048
  10. WARFARIN SODIUM [Suspect]
     Indication: ATRIAL FIBRILLATION
     Route: 048
  11. WARFARIN SODIUM [Suspect]
     Route: 048
  12. LANSOPRAZOLE [Concomitant]
     Indication: GASTROOESOPHAGEAL REFLUX DISEASE
     Dosage: 30 MG
     Route: 048
  13. SALINE [Concomitant]
     Indication: SEASONAL ALLERGY
     Route: 045
  14. HUMALOG [Concomitant]
     Dates: start: 20120321
  15. CALCIUM CARBONATE [Concomitant]
     Indication: MINERAL SUPPLEMENTATION
     Route: 048
  16. CARVEDILOL [Concomitant]
     Indication: HEART RATE
  17. HUMALOG [Concomitant]
     Indication: TYPE 2 DIABETES MELLITUS
     Dates: start: 20120321
  18. DIGOXIN [Suspect]
     Indication: CARDIAC FAILURE
     Route: 048
  19. DIGOXIN [Suspect]
     Indication: ATRIAL FIBRILLATION
  20. CARVEDILOL [Concomitant]
     Indication: BLOOD PRESSURE MANAGEMENT
     Dosage: 6.25 MG
     Route: 048

REACTIONS (1)
  - INJECTION SITE HAEMORRHAGE [None]
